FAERS Safety Report 8898387 (Version 4)
Quarter: 2013Q1

REPORT INFORMATION
  Report Type: Spontaneous
  Country: US (occurrence: US)
  Receive Date: 20121109
  Receipt Date: 20130321
  Transmission Date: 20140127
  Serious: No
  Sender: FDA-Public Use
  Company Number: US-009507513-1211USA003505

PATIENT
  Age: 46 None
  Sex: Male

DRUGS (9)
  1. VICTRELIS [Suspect]
     Indication: HEPATITIS C
     Dosage: 4 DF, TID
     Route: 048
     Dates: start: 20121013, end: 2012
  2. VICTRELIS [Suspect]
     Dosage: 800 MG, TID
     Route: 048
     Dates: start: 20121111
  3. RIBAPAK [Suspect]
     Dosage: UNK
     Dates: start: 20121013
  4. PEGASYS [Suspect]
     Dosage: UNK
     Dates: start: 20121013
  5. LOSARTAN POTASSIUM [Concomitant]
  6. METFORMIN [Concomitant]
  7. DIAZEPAM [Concomitant]
  8. ASPIRIN [Concomitant]
  9. PREVACID [Concomitant]

REACTIONS (4)
  - Skin discolouration [Unknown]
  - Erythema [Unknown]
  - Fatigue [Unknown]
  - Back pain [Unknown]
